FAERS Safety Report 5600093-X (Version None)
Quarter: 2008Q1

REPORT INFORMATION
  Report Type: 
  Country: None (occurrence: None)
  Receive Date: 20080123
  Receipt Date: 20080117
  Transmission Date: 20080703
  Serious: Yes (Death)
  Sender: FDA-Public Use
  Company Number: A0703881A

PATIENT
  Age: 84 Year
  Sex: Female

DRUGS (7)
  1. FLOVENT [Suspect]
     Indication: CHRONIC OBSTRUCTIVE PULMONARY DISEASE
     Dosage: 1PUFF TWICE PER DAY
     Route: 055
     Dates: end: 20071216
  2. SEREVENT [Suspect]
     Indication: CHRONIC OBSTRUCTIVE PULMONARY DISEASE
     Route: 055
     Dates: end: 20071216
  3. VENTOLIN [Suspect]
     Indication: CHRONIC OBSTRUCTIVE PULMONARY DISEASE
     Route: 065
     Dates: end: 20071216
  4. NOVOLIN N [Concomitant]
  5. NOVOLIN R [Concomitant]
  6. PREVACID [Concomitant]
  7. MULTIPLE MEDICATION [Concomitant]

REACTIONS (2)
  - CARDIAC FAILURE CONGESTIVE [None]
  - CHRONIC OBSTRUCTIVE PULMONARY DISEASE [None]
